FAERS Safety Report 5757291-4 (Version None)
Quarter: 2008Q2

REPORT INFORMATION
  Report Type: 
  Country: None (occurrence: None)
  Receive Date: 20080603
  Receipt Date: 20080527
  Transmission Date: 20081010
  Serious: Yes (Hospitalization)
  Sender: FDA-Public Use
  Company Number: FR-ROCHE-566978

PATIENT
  Sex: Male

DRUGS (12)
  1. ROCEPHIN [Suspect]
     Indication: DRUG USE FOR UNKNOWN INDICATION
     Dosage: FORM: INJECTABLE SOLUTION
     Route: 030
     Dates: start: 20080321, end: 20080322
  2. ROCEPHIN [Suspect]
     Route: 030
     Dates: start: 20080323, end: 20080325
  3. BACTRIM DS [Suspect]
     Indication: DRUG USE FOR UNKNOWN INDICATION
     Dosage: DOSAGE: 2 DOSES/ DAILY, 3 DAYS A WEEK
     Route: 048
     Dates: end: 20080325
  4. BACTRIM DS [Suspect]
     Dosage: DOSAGE: 2 DOSES/ DAILY, 3 DAYS A WEEK
     Route: 048
     Dates: end: 20080325
  5. DAFLON [Suspect]
     Indication: DRUG USE FOR UNKNOWN INDICATION
     Route: 048
     Dates: start: 20080321, end: 20080325
  6. DAFLON [Suspect]
     Route: 048
     Dates: start: 20080321, end: 20080325
  7. METFORMINE [Suspect]
     Indication: DRUG USE FOR UNKNOWN INDICATION
     Route: 048
     Dates: end: 20080325
  8. ZELITREX [Suspect]
     Indication: DRUG USE FOR UNKNOWN INDICATION
     Route: 048
     Dates: end: 20080325
  9. VFEND [Suspect]
     Indication: DRUG USE FOR UNKNOWN INDICATION
     Route: 065
     Dates: start: 20080321, end: 20080324
  10. TEGELINE [Suspect]
     Indication: DRUG USE FOR UNKNOWN INDICATION
     Route: 042
     Dates: start: 20060701
  11. TEGELINE [Suspect]
     Dosage: FORM: INJECTABLE SOLUTION
     Route: 042
     Dates: start: 20080321, end: 20080322
  12. TEGELINE [Suspect]
     Route: 042
     Dates: start: 20080323, end: 20080323

REACTIONS (2)
  - RENAL FAILURE ACUTE [None]
  - RENAL TUBULAR DISORDER [None]
